FAERS Safety Report 9163377 (Version 2)
Quarter: 2013Q2

REPORT INFORMATION
  Report Type: Spontaneous
  Country: US (occurrence: US)
  Receive Date: 20130314
  Receipt Date: 20130506
  Transmission Date: 20140414
  Serious: Yes (Other)
  Sender: FDA-Public Use
  Company Number: US-BAYER-2012-048644

PATIENT
  Age: 74 Year
  Sex: Male
  Weight: 109 kg

DRUGS (4)
  1. BAYER ADVANCED ASPIRIN REGULAR STRENGTH [Suspect]
     Dosage: 3 DF, PRN
     Route: 048
     Dates: start: 201203, end: 2013
  2. BAYER ASPIRIN REGIMEN ADULT LOW STRENGTH [Suspect]
     Dosage: 1 DF, QD
     Route: 048
  3. OXYCODONE [Concomitant]
  4. ALEVE [Concomitant]
     Dosage: UNK UNK, PRN
     Dates: start: 2013

REACTIONS (9)
  - Scrotal haematocoele [Recovered/Resolved]
  - Petechiae [None]
  - Blood disorder [Not Recovered/Not Resolved]
  - Local swelling [Recovered/Resolved]
  - Pain in extremity [Not Recovered/Not Resolved]
  - Skin discolouration [Recovered/Resolved]
  - Post procedural discomfort [Not Recovered/Not Resolved]
  - Post procedural discomfort [Recovered/Resolved]
  - Drug administration error [None]
